FAERS Safety Report 15235516 (Version 1)
Quarter: 2018Q3

REPORT INFORMATION
  Report Type: Spontaneous
  Country: US (occurrence: US)
  Receive Date: 20180803
  Receipt Date: 20180803
  Transmission Date: 20181010
  Serious: No
  Sender: FDA-Public Use
  Company Number: US-BAYER-2018-143017

PATIENT
  Age: 74 Year
  Sex: Female
  Weight: 73.47 kg

DRUGS (1)
  1. MIRALAX [Suspect]
     Active Substance: POLYETHYLENE GLYCOL 3350
     Indication: GASTROINTESTINAL DISORDER
     Dosage: UNK
     Route: 048

REACTIONS (5)
  - Poor quality drug administered [Unknown]
  - Wrong technique in product usage process [Unknown]
  - Malaise [Unknown]
  - Retching [Unknown]
  - Product odour abnormal [Unknown]
